FAERS Safety Report 7883928-X (Version None)
Quarter: 2011Q4

REPORT INFORMATION
  Report Type: 
  Country: None (occurrence: None)
  Receive Date: 20111102
  Receipt Date: 20111027
  Transmission Date: 20120403
  Serious: Yes (Hospitalization)
  Sender: FDA-Public Use
  Company Number: US-JNJFOC-20111012551

PATIENT
  Age: 43 Year
  Sex: Female

DRUGS (6)
  1. UNKNOWN MEDICATION [Concomitant]
     Indication: TYPE 2 DIABETES MELLITUS
     Route: 048
  2. ATENOLOL [Concomitant]
     Indication: HYPERTENSION
     Route: 048
  3. INVEGA SUSTENNA [Suspect]
     Route: 030
     Dates: start: 20111003
  4. WELLBUTRIN [Concomitant]
     Indication: DEPRESSION
     Route: 048
  5. NEXIUM [Concomitant]
     Indication: GASTROOESOPHAGEAL REFLUX DISEASE
     Route: 048
  6. INVEGA SUSTENNA [Suspect]
     Indication: SCHIZOPHRENIA
     Route: 030

REACTIONS (4)
  - INJECTION SITE ABSCESS [None]
  - NEEDLE ISSUE [None]
  - MENTAL DISORDER [None]
  - THINKING ABNORMAL [None]
